FAERS Safety Report 19767546 (Version 2)
Quarter: 2021Q4

REPORT INFORMATION
  Report Type: Spontaneous
  Country: US (occurrence: US)
  Receive Date: 20210831
  Receipt Date: 20211108
  Transmission Date: 20220304
  Serious: Yes (Other)
  Sender: FDA-Public Use
  Company Number: US-BAYER-2021-202075

PATIENT
  Age: 26 Year
  Sex: Female
  Weight: 74.739 kg

DRUGS (1)
  1. KYLEENA [Suspect]
     Active Substance: LEVONORGESTREL
     Indication: Contraception
     Dosage: 17.5?G/DAY
     Route: 015
     Dates: start: 20210820, end: 20210820

REACTIONS (2)
  - Embedded device [Recovered/Resolved]
  - Complication of device insertion [None]

NARRATIVE: CASE EVENT DATE: 20210820
